FAERS Safety Report 16638873 (Version 1)
Quarter: 2019Q3

REPORT INFORMATION
  Report Type: Spontaneous
  Country: US (occurrence: US)
  Receive Date: 20190726
  Receipt Date: 20190726
  Transmission Date: 20191004
  Serious: No
  Sender: FDA-Public Use
  Company Number: US-MYLANLABS-2019M1064662

PATIENT
  Sex: Female
  Weight: 59 kg

DRUGS (3)
  1. TADALAFIL TABLETS USP [Suspect]
     Active Substance: TADALAFIL
     Indication: PULMONARY HYPERTENSION
     Dosage: 20 MILLIGRAM, BID
     Route: 048
     Dates: end: 20190704
  2. TYVASO [Concomitant]
     Active Substance: TREPROSTINIL
     Indication: PULMONARY HYPERTENSION
  3. LETAIRIS [Concomitant]
     Active Substance: AMBRISENTAN
     Indication: PULMONARY HYPERTENSION

REACTIONS (9)
  - Hypersensitivity [Recovered/Resolved]
  - Eye disorder [Recovered/Resolved]
  - Visual impairment [Recovered/Resolved]
  - Influenza [Recovered/Resolved]
  - Erythema of eyelid [Recovered/Resolved]
  - Madarosis [Recovered/Resolved]
  - Swelling of eyelid [Recovered/Resolved]
  - Nasal congestion [Recovered/Resolved]
  - Sinus disorder [Recovered/Resolved]
